FAERS Safety Report 8095019-6 (Version None)
Quarter: 2012Q1

REPORT INFORMATION
  Report Type: 
  Country: None (occurrence: None)
  Receive Date: 20120131
  Receipt Date: 20120131
  Transmission Date: 20120608
  Serious: Yes (Hospitalization)
  Sender: FDA-Public Use
  Company Number: None

PATIENT
  Age: 43 Year
  Sex: Female
  Weight: 107.7 kg

DRUGS (12)
  1. MORPHINE [Concomitant]
  2. ZITHROMAX [Suspect]
     Indication: SINUSITIS
     Dosage: 500MG DAY 1, 250MG DAY 2
     Route: 048
     Dates: start: 20120121, end: 20120122
  3. GABAPENTIN [Concomitant]
  4. BACLOFEN [Concomitant]
  5. HYDROCORTISONE [Concomitant]
  6. EFFEXOR [Concomitant]
  7. ACETAMINOPHEN [Concomitant]
  8. DILANTIN [Concomitant]
  9. DILAUDID [Concomitant]
  10. FENTANYL-100 [Concomitant]
  11. ALBUTEROL [Concomitant]
  12. ATENOLOL [Concomitant]

REACTIONS (9)
  - FLUSHING [None]
  - RASH [None]
  - ERYTHEMA [None]
  - PRURITUS [None]
  - HYPERSENSITIVITY [None]
  - COUGH [None]
  - DYSPNOEA [None]
  - CHEST DISCOMFORT [None]
  - VOMITING [None]
